FAERS Safety Report 4846479-2 (Version None)
Quarter: 2005Q4

REPORT INFORMATION
  Report Type: 
  Country: None (occurrence: None)
  Receive Date: 20051202
  Receipt Date: 20051130
  Transmission Date: 20060501
  Serious: Yes (Death)
  Sender: FDA-Public Use
  Company Number: AE-1105-254

PATIENT
  Age: 38 Year
  Sex: Male

DRUGS (1)
  1. LIDODERM PATCH, LIDOCAINE 5%, 700MG/PTACH [Suspect]
     Indication: NECK PAIN
     Dosage: 1 PATCH A DAY/2-3 YEARS

REACTIONS (1)
  - MYOCARDIAL INFARCTION [None]
